FAERS Safety Report 23861889 (Version 2)
Quarter: 2024Q2

REPORT INFORMATION
  Report Type: Spontaneous
  Country: JP (occurrence: JP)
  Receive Date: 20240516
  Receipt Date: 20240522
  Transmission Date: 20240716
  Serious: Yes (Life-Threatening, Hospitalization, Other)
  Sender: FDA-Public Use
  Company Number: JP-MACLEODS PHARMA-MAC2024047221

PATIENT

DRUGS (1)
  1. ACETAMINOPHEN\TRAMADOL [Suspect]
     Active Substance: ACETAMINOPHEN\TRAMADOL
     Indication: Back pain
     Dosage: DOSE EQUIVALENT: 1,575 MG/13,650 MG (TRAMADOL/PARACETAMOL)
     Route: 065

REACTIONS (6)
  - CHANTER syndrome [Recovering/Resolving]
  - Leukoencephalopathy [Recovering/Resolving]
  - Depressed level of consciousness [Recovering/Resolving]
  - Toxicity to various agents [Recovering/Resolving]
  - Cerebral hypoperfusion [Not Recovered/Not Resolved]
  - Overdose [Recovering/Resolving]
